FAERS Safety Report 5850345-3 (Version None)
Quarter: 2008Q3

REPORT INFORMATION
  Report Type: 
  Country: None (occurrence: None)
  Receive Date: 20080819
  Receipt Date: 20080814
  Transmission Date: 20090109
  Serious: Yes (Hospitalization)
  Sender: FDA-Public Use
  Company Number: JP-MERCK-0808USA02872

PATIENT

DRUGS (2)
  1. HYZAAR [Suspect]
     Indication: HYPERTENSION
     Route: 048
  2. [THERAPY UNSPECIFIED] [Suspect]
     Route: 065

REACTIONS (4)
  - ANOREXIA [None]
  - ELECTROLYTE IMBALANCE [None]
  - HYPOGLYCAEMIA [None]
  - RENAL IMPAIRMENT [None]
